FAERS Safety Report 23152873 (Version 2)
Quarter: 2023Q4

REPORT INFORMATION
  Report Type: Spontaneous
  Country: US (occurrence: US)
  Receive Date: 20231107
  Receipt Date: 20231121
  Transmission Date: 20240110
  Serious: No
  Sender: FDA-Public Use
  Company Number: US-ABBVIE-5485000

PATIENT
  Sex: Female

DRUGS (1)
  1. SAVELLA [Suspect]
     Active Substance: MILNACIPRAN HYDROCHLORIDE
     Indication: Pain
     Route: 048

REACTIONS (2)
  - Pain [Unknown]
  - Therapeutic product effect decreased [Unknown]
